FAERS Safety Report 9013631 (Version 2)
Quarter: 2016Q1

REPORT INFORMATION
  Report Type: Report from Study
  Country: CZ (occurrence: CZ)
  Receive Date: 20130115
  Receipt Date: 20160115
  Transmission Date: 20160526
  Serious: Yes (Life-Threatening, Hospitalization, Other)
  Sender: FDA-Public Use
  Company Number: PHHY2013CZ001589

PATIENT
  Age: 46 Year
  Sex: Female

DRUGS (4)
  1. AFINITOR [Suspect]
     Active Substance: EVEROLIMUS
     Indication: RENAL CELL CARCINOMA
     Dosage: 10 MG, QD
     Route: 065
     Dates: start: 20101215, end: 20111130
  2. AFINITOR [Suspect]
     Active Substance: EVEROLIMUS
     Dosage: 5 MG, QD
     Route: 065
     Dates: start: 20121218, end: 20131001
  3. AFINITOR [Suspect]
     Active Substance: EVEROLIMUS
     Dosage: 5 MG, QD
     Route: 065
     Dates: start: 20120612, end: 20120710
  4. AFINITOR [Suspect]
     Active Substance: EVEROLIMUS
     Dosage: 5 MG, QD
     Route: 065
     Dates: start: 20140204, end: 20140526

REACTIONS (10)
  - Septic shock [Recovering/Resolving]
  - Lymphocyte count decreased [Unknown]
  - Malignant neoplasm progression [Unknown]
  - Renal failure [Unknown]
  - Pyelonephritis [Recovering/Resolving]
  - Neutrophil count decreased [Unknown]
  - Renal abscess [Unknown]
  - Renal impairment [Unknown]
  - General physical health deterioration [Unknown]
  - Multiple organ dysfunction syndrome [Unknown]

NARRATIVE: CASE EVENT DATE: 20121121
